FAERS Safety Report 9938118 (Version 2)
Quarter: 2014Q1

REPORT INFORMATION
  Report Type: Spontaneous
  Country: ES (occurrence: ES)
  Receive Date: 20140303
  Receipt Date: 20140327
  Transmission Date: 20141002
  Serious: Yes (Death)
  Sender: FDA-Public Use
  Company Number: ES-ROCHE-1355726

PATIENT
  Age: 79 Year
  Sex: 0

DRUGS (4)
  1. MABTHERA [Suspect]
     Indication: LYMPHOMA
     Dosage: 500 MG CONCENTRATE FOR SOLUTION FOR INFUSION, 1 VIAL OF 50 ML
     Route: 065
     Dates: start: 201304, end: 20130712
  2. CYCLOPHOSPHAMIDE [Interacting]
     Indication: LYMPHOMA
     Route: 065
     Dates: start: 201304, end: 201307
  3. VINCRISTINE [Interacting]
     Indication: LYMPHOMA
     Route: 065
     Dates: start: 201304, end: 20130712
  4. DOXORUBICIN [Interacting]
     Indication: LYMPHOMA
     Route: 065
     Dates: start: 201304, end: 20130712

REACTIONS (2)
  - Hepatitis B [Fatal]
  - Drug interaction [Fatal]
